FAERS Safety Report 7219331-5 (Version None)
Quarter: 2011Q1

REPORT INFORMATION
  Report Type: 
  Country: None (occurrence: None)
  Receive Date: 20110111
  Receipt Date: 20110108
  Transmission Date: 20110831
  Serious: No
  Sender: FDA-Public Use
  Company Number: US-PFIZER INC-2011005084

PATIENT
  Sex: Female
  Weight: 52 kg

DRUGS (3)
  1. LYRICA [Suspect]
     Indication: FIBROMYALGIA
     Dosage: 50 MG, 3X/DAY
     Route: 048
  2. TRAMADOL [Concomitant]
     Dosage: UNK
  3. PANADEINE CO [Concomitant]
     Dosage: UNK

REACTIONS (7)
  - HEADACHE [None]
  - DRUG DISPENSING ERROR [None]
  - DIZZINESS [None]
  - WEIGHT INCREASED [None]
  - DRUG INTOLERANCE [None]
  - VISION BLURRED [None]
  - GAIT DISTURBANCE [None]
